FAERS Safety Report 4885588-9 (Version None)
Quarter: 2006Q1

REPORT INFORMATION
  Report Type: 
  Country: None (occurrence: None)
  Receive Date: 20060119
  Receipt Date: 20051227
  Transmission Date: 20060701
  Serious: Yes (Life-Threatening, Hospitalization, Other)
  Sender: FDA-Public Use
  Company Number: JP-MERCK-0512USA03947

PATIENT
  Age: 68 Year
  Sex: Male

DRUGS (16)
  1. PEPCID [Suspect]
     Indication: STRESS ULCER
     Route: 042
     Dates: start: 20051017, end: 20051017
  2. TICLOPIDINE HYDROCHLORIDE [Suspect]
     Indication: CEREBRAL INFARCTION
     Route: 048
     Dates: start: 20051017, end: 20051124
  3. PEPCID [Suspect]
     Route: 048
     Dates: start: 20051018, end: 20051124
  4. GLUCOBAY [Concomitant]
     Indication: DIABETES MELLITUS
     Route: 048
     Dates: start: 20051018, end: 20051124
  5. AMARYL [Concomitant]
     Indication: DIABETES MELLITUS
     Route: 048
     Dates: start: 20051018, end: 20051021
  6. AMARYL [Concomitant]
     Route: 048
     Dates: start: 20051022, end: 20051124
  7. KINEDAK [Concomitant]
     Indication: DIABETIC NEUROPATHY
     Route: 048
     Dates: start: 20051018, end: 20051124
  8. BEZATOL SR [Concomitant]
     Indication: HYPERLIPIDAEMIA
     Route: 048
     Dates: start: 20051018, end: 20051124
  9. ASPIRIN [Concomitant]
     Indication: CEREBRAL INFARCTION
     Route: 048
     Dates: start: 20051017, end: 20051017
  10. ASPIRIN [Concomitant]
     Route: 048
     Dates: start: 20051018, end: 20051124
  11. XANBON [Concomitant]
     Indication: CEREBRAL INFARCTION
     Route: 042
     Dates: start: 20051017, end: 20051023
  12. XANBON [Concomitant]
     Route: 042
     Dates: start: 20051024, end: 20051030
  13. HEPARIN SODIUM [Concomitant]
     Indication: CEREBRAL INFARCTION
     Route: 051
     Dates: start: 20051017, end: 20051017
  14. HEPARIN SODIUM [Concomitant]
     Route: 051
     Dates: start: 20051018, end: 20051019
  15. HEPARIN SODIUM [Concomitant]
     Route: 051
     Dates: start: 20051020, end: 20051021
  16. HEPARIN SODIUM [Concomitant]
     Route: 051
     Dates: start: 20051022, end: 20051023

REACTIONS (4)
  - AGRANULOCYTOSIS [None]
  - HEPATIC FUNCTION ABNORMAL [None]
  - RENAL IMPAIRMENT [None]
  - RHABDOMYOLYSIS [None]
